FAERS Safety Report 6552127-6 (Version None)
Quarter: 2010Q1

REPORT INFORMATION
  Report Type: 
  Country: None (occurrence: None)
  Receive Date: 20100120
  Receipt Date: 20100112
  Transmission Date: 20100710
  Serious: Yes (Life-Threatening, Hospitalization)
  Sender: FDA-Public Use
  Company Number: DSA_42240_2009

PATIENT
  Sex: Male

DRUGS (12)
  1. XENAZINE [Suspect]
     Indication: CHOREA
     Dosage: 12.5 MG BID ORAL, 12.5 MG, 1 TABLET IN AM, 1 TABLET AT 5 PM AND 6.25 MG AT 9 PM ORAL, 12.5 MG BID OR
     Route: 048
     Dates: start: 20090101, end: 20090101
  2. XENAZINE [Suspect]
     Indication: DYSTONIA
     Dosage: 12.5 MG BID ORAL, 12.5 MG, 1 TABLET IN AM, 1 TABLET AT 5 PM AND 6.25 MG AT 9 PM ORAL, 12.5 MG BID OR
     Route: 048
     Dates: start: 20090101, end: 20090101
  3. XENAZINE [Suspect]
     Indication: CHOREA
     Dosage: 12.5 MG BID ORAL, 12.5 MG, 1 TABLET IN AM, 1 TABLET AT 5 PM AND 6.25 MG AT 9 PM ORAL, 12.5 MG BID OR
     Route: 048
     Dates: start: 20090101, end: 20090101
  4. XENAZINE [Suspect]
     Indication: DYSTONIA
     Dosage: 12.5 MG BID ORAL, 12.5 MG, 1 TABLET IN AM, 1 TABLET AT 5 PM AND 6.25 MG AT 9 PM ORAL, 12.5 MG BID OR
     Route: 048
     Dates: start: 20090101, end: 20090101
  5. XENAZINE [Suspect]
     Indication: CHOREA
     Dosage: 12.5 MG BID ORAL, 12.5 MG, 1 TABLET IN AM, 1 TABLET AT 5 PM AND 6.25 MG AT 9 PM ORAL, 12.5 MG BID OR
     Route: 048
     Dates: start: 20090101
  6. XENAZINE [Suspect]
     Indication: DYSTONIA
     Dosage: 12.5 MG BID ORAL, 12.5 MG, 1 TABLET IN AM, 1 TABLET AT 5 PM AND 6.25 MG AT 9 PM ORAL, 12.5 MG BID OR
     Route: 048
     Dates: start: 20090101
  7. BACLOFEN [Concomitant]
  8. VALIUM [Concomitant]
  9. ATENOLOL [Concomitant]
  10. FOLATE [Concomitant]
  11. CLONAZEPAM [Concomitant]
  12. BENADRYL [Concomitant]

REACTIONS (5)
  - BLOOD PRESSURE INCREASED [None]
  - DRUG ADMINISTRATION ERROR [None]
  - HYPOTENSION [None]
  - SEPSIS [None]
  - VIRAL INFECTION [None]
